FAERS Safety Report 9100025 (Version 1)
Quarter: 2013Q1

REPORT INFORMATION
  Report Type: Spontaneous
  Country: ES (occurrence: ES)
  Receive Date: 20130215
  Receipt Date: 20130215
  Transmission Date: 20140127
  Serious: Yes (Hospitalization)
  Sender: FDA-Public Use
  Company Number: ES-B.I. PHARMACEUTICALS,INC./RIDGEFIELD-2013-ES-00056ES

PATIENT
  Age: 55 Year
  Sex: Female

DRUGS (4)
  1. PRADAXA [Suspect]
     Indication: ATRIAL FIBRILLATION
     Dosage: 300 MG
     Route: 048
     Dates: start: 2012
  2. ATACAND [Concomitant]
     Indication: HYPERTENSION
  3. SUTRIL NEO [Concomitant]
  4. TRUMSAL [Concomitant]
     Dosage: 180 MG

REACTIONS (1)
  - Headache [Recovered/Resolved]
